FAERS Safety Report 16676293 (Version 1)
Quarter: 2019Q3

REPORT INFORMATION
  Report Type: Spontaneous
  Country: ES (occurrence: ES)
  Receive Date: 20190807
  Receipt Date: 20190807
  Transmission Date: 20191004
  Serious: Yes (Other)
  Sender: FDA-Public Use
  Company Number: ES-009507513-1908ESP001908

PATIENT
  Sex: Male
  Weight: 104 kg

DRUGS (2)
  1. TESAVEL [Suspect]
     Active Substance: SITAGLIPTIN PHOSPHATE
     Indication: DIABETES MELLITUS
     Dosage: 100MG QD (1 DAILY); STRENGTH 28 TABLETS
     Route: 048
     Dates: start: 201001
  2. SPIRAXIN [Suspect]
     Active Substance: RIFAXIMIN
     Indication: INFLAMMATION
     Dosage: 200MG, 4 TIMES PER DAY; STRENGTH 12TABLETS
     Route: 048
     Dates: start: 201904

REACTIONS (3)
  - Urticaria [Not Recovered/Not Resolved]
  - Dizziness [Not Recovered/Not Resolved]
  - Abdominal pain [Not Recovered/Not Resolved]

NARRATIVE: CASE EVENT DATE: 20190620
